FAERS Safety Report 7465843-9 (Version None)
Quarter: 2011Q2

REPORT INFORMATION
  Report Type: 
  Country: None (occurrence: None)
  Receive Date: 20110509
  Receipt Date: 20100407
  Transmission Date: 20111010
  Serious: No
  Sender: FDA-Public Use
  Company Number: US-ALEXION-A201000405

PATIENT
  Sex: Male

DRUGS (11)
  1. XANAX [Concomitant]
     Indication: ANXIETY
     Dosage: 160 MG, BID
     Route: 048
  2. CALCIUM CARBONATE [Concomitant]
     Dosage: 600 MG, QD
     Route: 048
  3. BENAZEPRIL HYDROCHLORIDE W/HYDROCHLOROTHIAZ. [Concomitant]
     Indication: HYPERTENSION
     Dosage: 10 MG, QD
     Route: 048
  4. DILTIAZEM [Concomitant]
     Indication: HYPERTENSION
     Dosage: 120 MG, BID
  5. KLOR-CON [Concomitant]
     Dosage: 20 MEQ, QD
     Route: 048
  6. FOLIC ACID [Concomitant]
     Indication: PAROXYSMAL NOCTURNAL HAEMOGLOBINURIA
     Dosage: 1 MG, BID
     Route: 048
  7. SOLIRIS [Suspect]
     Dosage: 900 MG, Q14D
     Route: 042
     Dates: start: 20080521
  8. SOLIRIS [Suspect]
     Indication: PAROXYSMAL NOCTURNAL HAEMOGLOBINURIA
     Dosage: 600 MG, UNK
     Route: 042
     Dates: start: 20080424, end: 20080515
  9. COUMADIN [Concomitant]
     Indication: THROMBOSIS PROPHYLAXIS
     Dosage: 5 MG, QD
     Route: 048
  10. PREDNISONE [Concomitant]
     Indication: PAROXYSMAL NOCTURNAL HAEMOGLOBINURIA
     Dosage: 10 MG, QD
     Route: 048
  11. PHENYTOIN [Concomitant]
     Indication: CONVULSION
     Dosage: 100 MG, QD
     Route: 048

REACTIONS (3)
  - BACK PAIN [None]
  - PHOTOPSIA [None]
  - MIGRAINE [None]
